FAERS Safety Report 17354028 (Version 2)
Quarter: 2020Q1

REPORT INFORMATION
  Report Type: Spontaneous
  Country: JP (occurrence: JP)
  Receive Date: 20200131
  Receipt Date: 20200220
  Transmission Date: 20200409
  Serious: Yes (Hospitalization)
  Sender: FDA-Public Use
  Company Number: JP-MYLANLABS-2020M1008964

PATIENT
  Age: 77 Year
  Sex: Female

DRUGS (5)
  1. MAGNESIUM OXIDE. [Suspect]
     Active Substance: MAGNESIUM OXIDE
     Indication: BLADDER DISORDER
     Dosage: 990 MILLIGRAM, QD
     Route: 048
  2. SODIUM PICOSULFATE [Suspect]
     Active Substance: SODIUM PICOSULFATE
     Indication: DEFAECATION DISORDER
     Route: 065
  3. DAIKENCHUTO [Concomitant]
     Active Substance: HERBALS
     Indication: DEFAECATION DISORDER
     Route: 065
  4. MAGNESIUM OXIDE. [Suspect]
     Active Substance: MAGNESIUM OXIDE
     Indication: ANORECTAL DISORDER
  5. GLYCERIN                           /00200601/ [Concomitant]
     Active Substance: GLYCERIN
     Indication: DEFAECATION DISORDER
     Route: 054

REACTIONS (2)
  - Hypermagnesaemia [Recovered/Resolved]
  - Therapeutic response decreased [Unknown]
